FAERS Safety Report 24878310 (Version 1)
Quarter: 2025Q1

REPORT INFORMATION
  Report Type: Spontaneous
  Country: UA (occurrence: UA)
  Receive Date: 20250123
  Receipt Date: 20250123
  Transmission Date: 20250408
  Serious: Yes (Death)
  Sender: MYLAN
  Company Number: UA-MYLANLABS-2025M1006348

PATIENT
  Age: 62 Year
  Sex: Male

DRUGS (3)
  1. PRETOMANID [Suspect]
     Active Substance: PRETOMANID
     Indication: Tuberculosis
     Dosage: 0.2 GRAM, QD
     Route: 048
     Dates: start: 20241226, end: 20250104
  2. BEDAQUILINE [Suspect]
     Active Substance: BEDAQUILINE
     Indication: Tuberculosis
     Dosage: 0.4 GRAM, QD
     Route: 048
     Dates: start: 20241226, end: 20250104
  3. LINEZOLID [Concomitant]
     Active Substance: LINEZOLID
     Dosage: 0.6 GRAM, QD
     Route: 065
     Dates: start: 20241226, end: 20250104

REACTIONS (1)
  - Death [Fatal]

NARRATIVE: CASE EVENT DATE: 20250104
